FAERS Safety Report 24465392 (Version 1)
Quarter: 2024Q4

REPORT INFORMATION
  Report Type: Report from Study
  Country: US (occurrence: US)
  Receive Date: 20241018
  Receipt Date: 20241018
  Transmission Date: 20250115
  Serious: No
  Sender: ROCHE
  Company Number: US-ROCHE-3509530

PATIENT
  Age: 70 Year
  Sex: Male

DRUGS (7)
  1. XOLAIR [Suspect]
     Active Substance: OMALIZUMAB
     Indication: Idiopathic urticaria
     Dosage: ANTICIPATED DATE OF TREATMENT REPORTED ON 04/JAN/2024
     Route: 058
     Dates: start: 202004
  2. AVASTIN [Suspect]
     Active Substance: BEVACIZUMAB
     Indication: Eye disorder
     Route: 065
     Dates: start: 20240118
  3. XOLAIR [Suspect]
     Active Substance: OMALIZUMAB
     Indication: Idiopathic urticaria
     Route: 058
  4. XOLAIR [Suspect]
     Active Substance: OMALIZUMAB
  5. AZELASTINE [Concomitant]
     Active Substance: AZELASTINE
     Dosage: 0.1 %
  6. EPINEPHRINE [Concomitant]
     Active Substance: EPINEPHRINE
     Dosage: 0.3 MG/0.3 ML
  7. ALLEGRA [Concomitant]
     Active Substance: FEXOFENADINE HYDROCHLORIDE
     Dosage: 180 MG TABLET

REACTIONS (2)
  - Off label use [Unknown]
  - Urticaria [Unknown]

NARRATIVE: CASE EVENT DATE: 20240118
